FAERS Safety Report 16546994 (Version 1)
Quarter: 2019Q3

REPORT INFORMATION
  Report Type: Spontaneous
  Country: GB (occurrence: GB)
  Receive Date: 20190709
  Receipt Date: 20190709
  Transmission Date: 20191004
  Serious: Yes (Hospitalization)
  Sender: FDA-Public Use
  Company Number: GB-MYLANLABS-2019M1062606

PATIENT
  Age: 48 Year
  Sex: Male

DRUGS (7)
  1. SITAGLIPTIN [Concomitant]
     Active Substance: SITAGLIPTIN
     Dosage: 50 MILLIGRAM, QD
  2. FELODIPINE. [Concomitant]
     Active Substance: FELODIPINE
     Dosage: MORNING
  3. BISOPROLOL [Concomitant]
     Active Substance: BISOPROLOL
     Dosage: 1.25 MILLIGRAM, QD
  4. WARFARIN [Suspect]
     Active Substance: WARFARIN
     Indication: PRODUCT USED FOR UNKNOWN INDICATION
     Dosage: 5MG DAILY ON A MONDAY THEN 4MG DAILY FOR THE REMAINDER OF THE WEEK
     Route: 048
     Dates: end: 20180627
  5. METFORMIN [Concomitant]
     Active Substance: METFORMIN HYDROCHLORIDE
     Dosage: MORNING AND TEA
  6. SIMVASTATIN. [Concomitant]
     Active Substance: SIMVASTATIN
     Dosage: NIGHT
  7. BRINZOLAMIDE [Concomitant]
     Active Substance: BRINZOLAMIDE
     Dosage: 10MG/ML. IN EACH EYE.
     Route: 031

REACTIONS (3)
  - International normalised ratio increased [Unknown]
  - Upper gastrointestinal haemorrhage [Recovered/Resolved]
  - Gastric ulcer [Unknown]
